FAERS Safety Report 9665001 (Version 1)
Quarter: 2013Q4

REPORT INFORMATION
  Report Type: Spontaneous
  Country: US (occurrence: US)
  Receive Date: 20131101
  Receipt Date: 20131101
  Transmission Date: 20140711
  Serious: Yes (Hospitalization, Other)
  Sender: FDA-Public Use
  Company Number: US-ROXANE LABORATORIES, INC.-2013-RO-01750RO

PATIENT
  Age: 65 Year
  Sex: Male

DRUGS (10)
  1. LITHIUM CARBONATE [Suspect]
     Indication: BIPOLAR DISORDER
     Dosage: 900 MG
  2. METOPROLOL [Suspect]
     Dosage: 25 MG
     Route: 048
  3. ASPIRIN [Suspect]
     Dosage: 81 MG
     Route: 048
  4. WARFARIN [Suspect]
     Dosage: 5 MG
     Route: 048
  5. LISINOPRIL [Suspect]
     Dosage: 10 MG
     Route: 048
  6. SPIRONOLACTONE [Suspect]
     Dosage: 12.5 MG
     Route: 048
  7. SIMVASTATIN [Suspect]
     Dosage: 40 MG
     Route: 048
  8. GABAPENTIN [Suspect]
     Dosage: 1800 MG
     Route: 048
  9. SILDENAFIL [Suspect]
     Dosage: 100 MG
     Route: 048
  10. PROSTATE HEALTH SUPPLEMENT [Concomitant]
     Indication: SUPPLEMENTATION THERAPY

REACTIONS (5)
  - Toxicity to various agents [Recovered/Resolved]
  - Aphasia [Recovered/Resolved]
  - Fall [Unknown]
  - Weight decreased [Unknown]
  - Dehydration [Unknown]
